FAERS Safety Report 5802988-0 (Version None)
Quarter: 2008Q2

REPORT INFORMATION
  Report Type: 
  Country: None (occurrence: None)
  Receive Date: 20080625
  Receipt Date: 20070524
  Transmission Date: 20081010
  Serious: Yes (Hospitalization)
  Sender: FDA-Public Use
  Company Number: DSU-2007-00218

PATIENT
  Age: 50 Year
  Sex: Female
  Weight: 92.9874 kg

DRUGS (5)
  1. BENICAR [Suspect]
     Indication: HYPERTENSION
     Dosage: 20 MG (20 MG, QD) ,PER ORAL : 20 MG (20 MG, 1/2 OF A 40 MG TABLET QD) ,PER ORAL
     Route: 048
     Dates: start: 20050601, end: 20060801
  2. BENICAR [Suspect]
     Indication: HYPERTENSION
     Dosage: 20 MG (20 MG, QD) ,PER ORAL : 20 MG (20 MG, 1/2 OF A 40 MG TABLET QD) ,PER ORAL
     Route: 048
     Dates: start: 20070523
  3. MOBIC [Concomitant]
  4. LOVASTATIN [Concomitant]
  5. LOPRESSOR (METOPROLOL TARTRATE) (TABLET) (METOPROLOL TARTRATE0 [Concomitant]

REACTIONS (1)
  - CHEST PAIN [None]
